FAERS Safety Report 17111290 (Version 1)
Quarter: 2019Q4

REPORT INFORMATION
  Report Type: Spontaneous
  Country: DE (occurrence: DE)
  Receive Date: 20191204
  Receipt Date: 20191204
  Transmission Date: 20200122
  Serious: Yes (Other)
  Sender: FDA-Public Use
  Company Number: DE-MYLANLABS-2019M1117284

PATIENT
  Age: 30 Year
  Sex: Male
  Weight: 76 kg

DRUGS (6)
  1. PAROXETINE. [Suspect]
     Active Substance: PAROXETINE
     Indication: OFF LABEL USE
  2. PAROXETINE. [Suspect]
     Active Substance: PAROXETINE
     Indication: EJACULATION DISORDER
     Dosage: 20MG
     Route: 048
     Dates: start: 20130717, end: 20150416
  3. PAROXETINE. [Suspect]
     Active Substance: PAROXETINE
     Indication: DEPRESSION
  4. SERTRALINE [Suspect]
     Active Substance: SERTRALINE HYDROCHLORIDE
     Indication: DEPRESSION
  5. SERTRALINE [Suspect]
     Active Substance: SERTRALINE HYDROCHLORIDE
     Indication: ANXIETY DISORDER
     Dosage: 50MG
     Route: 048
     Dates: start: 20150409, end: 2017
  6. PAROXETINE. [Suspect]
     Active Substance: PAROXETINE
     Indication: ANXIETY DISORDER

REACTIONS (8)
  - Male orgasmic disorder [Unknown]
  - Orgasm abnormal [Unknown]
  - Anhedonia [Unknown]
  - Libido decreased [Not Recovered/Not Resolved]
  - Erectile dysfunction [Not Recovered/Not Resolved]
  - Disturbance in attention [Unknown]
  - Aggression [Unknown]
  - Adverse drug reaction [Unknown]

NARRATIVE: CASE EVENT DATE: 20160910
